FAERS Safety Report 18611561 (Version 1)
Quarter: 2020Q4

REPORT INFORMATION
  Report Type: Spontaneous
  Country: FR (occurrence: FR)
  Receive Date: 20201214
  Receipt Date: 20201214
  Transmission Date: 20210114
  Serious: Yes (Other)
  Sender: FDA-Public Use
  Company Number: FR-AMNEAL PHARMACEUTICALS-2020-AMRX-03883

PATIENT
  Age: 73 Year
  Sex: Female

DRUGS (2)
  1. TRAMADOL HYDROCHLORIDE. [Suspect]
     Active Substance: TRAMADOL HYDROCHLORIDE
     Indication: BACK PAIN
     Dosage: 200 MILLIGRAM, DAILY FOR 16 YEARS
     Route: 065
  2. TRAMADOL HYDROCHLORIDE. [Suspect]
     Active Substance: TRAMADOL HYDROCHLORIDE
     Dosage: PROGRESSIVELY REDUCED DOSE OVER ONE MONTH
     Route: 065

REACTIONS (1)
  - Cystoid macular oedema [Recovered/Resolved]
